FAERS Safety Report 5165255-7 (Version None)
Quarter: 2006Q4

REPORT INFORMATION
  Report Type: 
  Country: None (occurrence: None)
  Receive Date: 20061124
  Receipt Date: 20061114
  Transmission Date: 20070319
  Serious: Yes (Other)
  Sender: FDA-Public Use
  Company Number: 2006141405

PATIENT
  Sex: Male

DRUGS (4)
  1. VFEND [Suspect]
     Indication: ASPERGILLOSIS
     Dosage: 400 MG (200 MG, 2 IN 1 D); SEE IMAGE
     Dates: start: 20060619, end: 20060901
  2. VFEND [Suspect]
     Indication: EMPHYSEMA
     Dosage: 400 MG (200 MG, 2 IN 1 D); SEE IMAGE
     Dates: start: 20060619, end: 20060901
  3. VFEND [Suspect]
     Indication: ASPERGILLOSIS
     Dosage: 400 MG (200 MG, 2 IN 1 D); SEE IMAGE
     Dates: start: 20060901
  4. VFEND [Suspect]
     Indication: EMPHYSEMA
     Dosage: 400 MG (200 MG, 2 IN 1 D); SEE IMAGE
     Dates: start: 20060901

REACTIONS (8)
  - ARTHRALGIA [None]
  - BACK PAIN [None]
  - CELL DEATH [None]
  - CHOLESTASIS [None]
  - FOOD INTOLERANCE [None]
  - MYALGIA [None]
  - NAUSEA [None]
  - VOMITING [None]
